FAERS Safety Report 12993352 (Version 1)
Quarter: 2016Q4

REPORT INFORMATION
  Report Type: Spontaneous
  Country: ES (occurrence: ES)
  Receive Date: 20161202
  Receipt Date: 20161202
  Transmission Date: 20170207
  Serious: Yes (Death, Other)
  Sender: FDA-Public Use
  Company Number: ES-SUN PHARMACEUTICAL INDUSTRIES LTD-2016RR-128572

PATIENT
  Age: 16 Year
  Sex: Female

DRUGS (19)
  1. DOXORUBICIN LIPOSOME [Suspect]
     Active Substance: DOXORUBICIN
     Indication: ADRENOCORTICAL CARCINOMA
     Dosage: 20 MG/M2 ON DAY 1 EVERY 21 DAYS
     Route: 065
     Dates: start: 201012
  2. IFOSFAMIDE. [Suspect]
     Active Substance: IFOSFAMIDE
     Indication: METASTASES TO LUNG
  3. DOXORUBICIN [Suspect]
     Active Substance: DOXORUBICIN
     Indication: ADRENOCORTICAL CARCINOMA
     Dosage: 50 MG/M2 ON DAY 1 EVERY 21 DAYS, 8 CYCLES
     Route: 065
     Dates: start: 200909
  4. CAPECITABINE. [Suspect]
     Active Substance: CAPECITABINE
     Indication: ADRENOCORTICAL CARCINOMA
     Dosage: 800 MG
     Route: 065
     Dates: start: 201206
  5. CISPLATIN. [Suspect]
     Active Substance: CISPLATIN
     Indication: METASTASES TO LUNG
     Dosage: 50 MG/M2 ON DAY 1
     Route: 065
     Dates: start: 201203
  6. SORAFENIB [Suspect]
     Active Substance: SORAFENIB
     Indication: METASTASES TO LUNG
  7. IFOSFAMIDE. [Suspect]
     Active Substance: IFOSFAMIDE
     Indication: ADRENOCORTICAL CARCINOMA
     Dosage: 2000 MG/M2, UNK
     Route: 065
     Dates: start: 201012
  8. ETOPOSIDE. [Suspect]
     Active Substance: ETOPOSIDE
     Indication: ADRENOCORTICAL CARCINOMA
     Dosage: 100 MG/M2 ON DAYS 1, 2, 3 EVERY 21 DAYS
     Route: 065
  9. CISPLATIN. [Suspect]
     Active Substance: CISPLATIN
     Indication: METASTASES TO LUNG
  10. GEMCITABINE [Suspect]
     Active Substance: GEMCITABINE\GEMCITABINE HYDROCHLORIDE
     Indication: ADRENOCORTICAL CARCINOMA
     Dosage: 800 MG/M2
     Route: 065
     Dates: start: 201206
  11. GEMCITABINE [Suspect]
     Active Substance: GEMCITABINE\GEMCITABINE HYDROCHLORIDE
     Indication: METASTASES TO LUNG
  12. SORAFENIB [Suspect]
     Active Substance: SORAFENIB
     Indication: ADRENOCORTICAL CARCINOMA
     Dosage: 400 MG, BID
     Route: 065
     Dates: end: 201010
  13. MESNA. [Suspect]
     Active Substance: MESNA
     Indication: ADRENOCORTICAL CARCINOMA
     Dosage: 2000 MG/M2 ON DAYS 1-3
     Route: 065
     Dates: start: 201012
  14. CISPLATIN. [Suspect]
     Active Substance: CISPLATIN
     Indication: ADRENOCORTICAL CARCINOMA
     Dosage: 100 MG/M2 ON DAY 1
     Route: 065
  15. DOXORUBICIN LIPOSOME [Suspect]
     Active Substance: DOXORUBICIN
     Dosage: 50 MG/M2 ON DAY 1 EVERY 21 DAYS
     Route: 065
     Dates: start: 201203
  16. MESNA. [Suspect]
     Active Substance: MESNA
     Indication: METASTASES TO LUNG
  17. CISPLATIN. [Suspect]
     Active Substance: CISPLATIN
     Indication: ADRENOCORTICAL CARCINOMA
     Dosage: 50 MG/M2 ON DAY 1, 8 CYCLES
     Route: 065
     Dates: start: 200909
  18. CAPECITABINE. [Suspect]
     Active Substance: CAPECITABINE
     Indication: METASTASES TO LUNG
  19. ETOPOSIDE. [Suspect]
     Active Substance: ETOPOSIDE
     Indication: METASTASES TO LUNG

REACTIONS (9)
  - Mucosal inflammation [Unknown]
  - Cystitis haemorrhagic [Unknown]
  - Blood creatinine decreased [Unknown]
  - Disease progression [Fatal]
  - Pyrexia [Unknown]
  - Gastroenteritis [Unknown]
  - Diarrhoea [Unknown]
  - Pancytopenia [Recovered/Resolved]
  - Dermatitis exfoliative [Unknown]

NARRATIVE: CASE EVENT DATE: 201303
